FAERS Safety Report 9867389 (Version 1)
Quarter: 2014Q1

REPORT INFORMATION
  Report Type: Spontaneous
  Country: IT (occurrence: IT)
  Receive Date: 20140204
  Receipt Date: 20140204
  Transmission Date: 20141002
  Serious: Yes (Life-Threatening)
  Sender: FDA-Public Use
  Company Number: PHHY2014IT011714

PATIENT
  Age: 72 Year
  Sex: Male

DRUGS (7)
  1. DICLOFENAC [Suspect]
     Indication: BACK PAIN
  2. KETOPROFEN [Interacting]
     Indication: BACK PAIN
  3. CELECOXIB [Interacting]
     Indication: BACK PAIN
  4. PREDNISONE [Interacting]
     Indication: BACK PAIN
  5. PAPAVERINE HYDROCHLORIDE [Interacting]
     Indication: ABDOMINAL PAIN
  6. ETORICOXIB [Interacting]
     Indication: BACK PAIN
  7. HYOSCINE N-BUTYLBROMIDE [Interacting]
     Indication: ABDOMINAL PAIN

REACTIONS (16)
  - Fatigue [Recovering/Resolving]
  - Back pain [Recovering/Resolving]
  - Pallor [Recovering/Resolving]
  - Asthenia [Recovering/Resolving]
  - Depression [Recovering/Resolving]
  - Decubitus ulcer [Recovering/Resolving]
  - Pulmonary arterial pressure increased [Recovering/Resolving]
  - Heart rate increased [Recovering/Resolving]
  - Iron deficiency anaemia [Recovering/Resolving]
  - Microcytic anaemia [Recovering/Resolving]
  - Gastric ulcer [Recovering/Resolving]
  - Gastric disorder [Recovering/Resolving]
  - Hyperaemia [Recovering/Resolving]
  - Faeces discoloured [Recovering/Resolving]
  - Drug prescribing error [Unknown]
  - Drug interaction [Unknown]
